FAERS Safety Report 5304237-9 (Version None)
Quarter: 2007Q2

REPORT INFORMATION
  Report Type: 
  Country: None (occurrence: None)
  Receive Date: 20070423
  Receipt Date: 20070413
  Transmission Date: 20071010
  Serious: Yes (Other)
  Sender: FDA-Public Use
  Company Number: PHEH2007US05426

PATIENT
  Age: 71 Year
  Sex: Female

DRUGS (7)
  1. ZELNORM [Suspect]
     Indication: CONSTIPATION
     Dosage: 6 MG, QD
     Route: 048
     Dates: start: 20050501, end: 20070411
  2. LEVOTHROID [Concomitant]
  3. CADUET [Concomitant]
     Indication: HYPERTENSION
     Route: 048
     Dates: start: 20070313
  4. HYDROCODONE W/APAP [Concomitant]
     Dosage: UNK, PRN
     Route: 048
  5. TOPROL-XL [Concomitant]
     Dates: start: 20070312
  6. LIPITOR                                 /NET/ [Concomitant]
     Dates: start: 20070312
  7. NEXIUM [Concomitant]
     Indication: GASTROOESOPHAGEAL REFLUX DISEASE

REACTIONS (5)
  - ARTERIAL STENT INSERTION [None]
  - BLOOD GLUCOSE INCREASED [None]
  - CATHETERISATION CARDIAC [None]
  - CHEST PAIN [None]
  - CORONARY ARTERY OCCLUSION [None]
